FAERS Safety Report 12947565 (Version 1)
Quarter: 2016Q4

REPORT INFORMATION
  Report Type: Spontaneous
  Country: PK (occurrence: PK)
  Receive Date: 20161116
  Receipt Date: 20161116
  Transmission Date: 20170207
  Serious: Yes (Death)
  Sender: FDA-Public Use
  Company Number: PK-BAYER-2016-219051

PATIENT
  Age: 67 Year
  Sex: Male

DRUGS (2)
  1. ULTRAVIST [Suspect]
     Active Substance: IOPROMIDE
     Indication: MASS
  2. ULTRAVIST [Suspect]
     Active Substance: IOPROMIDE
     Indication: COMPUTERISED TOMOGRAM ABDOMEN
     Dosage: UNK
     Route: 042
     Dates: start: 20161025, end: 20161025

REACTIONS (2)
  - Death [Fatal]
  - Blood pressure decreased [None]

NARRATIVE: CASE EVENT DATE: 20161025
